FAERS Safety Report 20655490 (Version 2)
Quarter: 2022Q1

REPORT INFORMATION
  Report Type: Spontaneous
  Country: US (occurrence: US)
  Receive Date: 20220330
  Receipt Date: 20220330
  Transmission Date: 20220423
  Serious: Yes (Hospitalization, Other)
  Sender: FDA-Public Use
  Company Number: US-GILEAD-2022-0575435

PATIENT
  Age: 8 Year
  Sex: Female
  Weight: 24.49 kg

DRUGS (6)
  1. AMBRISENTAN [Suspect]
     Active Substance: AMBRISENTAN
     Indication: Pulmonary arterial hypertension
     Route: 065
  2. REMODULIN [Suspect]
     Active Substance: TREPROSTINIL
     Indication: Pulmonary arterial hypertension
     Dosage: 0.049 UG/KG, CONTINUING
     Route: 042
     Dates: start: 20170605
  3. JANTOVEN [Suspect]
     Active Substance: WARFARIN SODIUM
     Indication: Product used for unknown indication
     Route: 065
  4. XELJANZ [Suspect]
     Active Substance: TOFACITINIB CITRATE
     Indication: Product used for unknown indication
     Route: 065
  5. TADALAFIL [Suspect]
     Active Substance: TADALAFIL
     Indication: Product used for unknown indication
     Route: 065
  6. EPOPROSTENOL SODIUM [Concomitant]
     Active Substance: EPOPROSTENOL SODIUM

REACTIONS (6)
  - Catheterisation cardiac [Unknown]
  - Implantable cardiac monitor insertion [Unknown]
  - Somnambulism [Unknown]
  - International normalised ratio decreased [Unknown]
  - Inappropriate schedule of product administration [Unknown]
  - Off label use [Unknown]

NARRATIVE: CASE EVENT DATE: 20220101
